FAERS Safety Report 5023111-9 (Version None)
Quarter: 2006Q2

REPORT INFORMATION
  Report Type: 
  Country: None (occurrence: None)
  Receive Date: 20060612
  Receipt Date: 20060228
  Transmission Date: 20061013
  Serious: Yes (Hospitalization)
  Sender: FDA-Public Use
  Company Number: US-SP-2006-00483

PATIENT
  Age: 60 Year
  Sex: Female

DRUGS (3)
  1. THERACYS [Suspect]
     Indication: BLADDER CANCER
     Route: 043
     Dates: start: 20060104
  2. THERACYS [Suspect]
     Route: 043
     Dates: start: 20060104
  3. THERACYS [Suspect]
     Route: 043
     Dates: start: 20060104

REACTIONS (4)
  - ARTHRALGIA [None]
  - CLOSTRIDIUM DIFFICILE COLITIS [None]
  - COUGH [None]
  - JOINT SWELLING [None]
